FAERS Safety Report 13548947 (Version 1)
Quarter: 2017Q2

REPORT INFORMATION
  Report Type: Spontaneous
  Country: US (occurrence: US)
  Receive Date: 20170516
  Receipt Date: 20170516
  Transmission Date: 20170830
  Serious: No
  Sender: FDA-Public Use
  Company Number: US-PFIZER INC-2017208742

PATIENT
  Sex: Male

DRUGS (1)
  1. XELJANZ XR [Suspect]
     Active Substance: TOFACITINIB CITRATE
     Dosage: UNK

REACTIONS (7)
  - Oropharyngeal pain [Unknown]
  - Dry eye [Unknown]
  - Odynophagia [Unknown]
  - Upper respiratory tract infection [Unknown]
  - Lymph node pain [Unknown]
  - Cough [Unknown]
  - Pharyngeal erythema [Unknown]
